FAERS Safety Report 20680997 (Version 1)
Quarter: 2022Q2

REPORT INFORMATION
  Report Type: Spontaneous
  Country: JP (occurrence: JP)
  Receive Date: 20220406
  Receipt Date: 20220406
  Transmission Date: 20220721
  Serious: Yes (Hospitalization)
  Sender: FDA-Public Use
  Company Number: DEX 2011-0073 (2)

PATIENT
  Age: 46 Year
  Sex: Male

DRUGS (35)
  1. DEXMEDETOMIDINE HYDROCHLORIDE [Suspect]
     Active Substance: DEXMEDETOMIDINE HYDROCHLORIDE
     Indication: Sedative therapy
     Dosage: INITIAL LOADING DOSE 3 TO 6 UG/KG/HR
     Route: 042
     Dates: start: 20110924, end: 20110924
  2. DEXMEDETOMIDINE HYDROCHLORIDE [Suspect]
     Active Substance: DEXMEDETOMIDINE HYDROCHLORIDE
     Dosage: MAINTENANCE DOSE 0.2 TO 0.7 UG/KG/HR
     Route: 042
     Dates: start: 20110924, end: 20110924
  3. PLACEBO [Suspect]
     Active Substance: UNSPECIFIED INGREDIENT
     Indication: Sedative therapy
     Dosage: INITIAL LOADING DOSE 3 TO 6 UG/KG/HR
     Route: 042
     Dates: start: 20110924, end: 20110924
  4. PLACEBO [Suspect]
     Active Substance: UNSPECIFIED INGREDIENT
     Dosage: MAINTENANCE DOSE 0.2 TO 0.7 UG/KG/HR
     Route: 042
     Dates: start: 20110924, end: 20110924
  5. XYLOCAINE ACCORDION [Concomitant]
     Indication: Anaesthesia
     Dosage: 10 ML; STRENGTH: 1% (10 ML)
     Route: 058
     Dates: start: 20110924
  6. XYLOCAINE ACCORDION [Concomitant]
     Dosage: 3 ML; STRENGTH: 1% (3 ML)
     Route: 058
     Dates: start: 20110924
  7. XYLOCAINE ACCORDION [Concomitant]
     Dosage: 2.5 ML; STRENGTH 1% (2.5 ML)
     Route: 058
     Dates: start: 20110924
  8. XYLOCAINE ACCORDION [Concomitant]
     Dosage: 0.5 ML; STRENGTH: 1% (0.5 ML)
     Route: 058
     Dates: start: 20110924
  9. XYLOCAINE ACCORDION [Concomitant]
     Dosage: 4 ML; STRENGTH: 1% (4 ML)
     Route: 058
     Dates: start: 20110924
  10. XYLOCAINE ACCORDION [Concomitant]
     Dosage: 1.5 ML; STRENGTH: 1% (1.5 ML)
     Route: 058
     Dates: start: 20110924
  11. XYLOCAINE ACCORDION [Concomitant]
     Dosage: 1.5 ML; STRENGTH: 1% (1 ML)
     Route: 058
     Dates: start: 20110926
  12. XYLOCAINE ACCORDION [Concomitant]
     Dosage: 1 ML; STRENGTH: 1% (1 ML)
     Route: 058
     Dates: start: 20110926
  13. XYLOCAINE ACCORDION [Concomitant]
     Dosage: 1.5 ML; STRENGTH: 1% (1.5 ML)
     Route: 058
     Dates: start: 20110926
  14. XYLOCAINE ACCORDION [Concomitant]
     Dosage: 2.5 ML; STRENGTH: 1% (2.5 ML)
     Route: 058
     Dates: start: 20110926
  15. XYLOCAINE ACCORDION [Concomitant]
     Dosage: 3.5 ML; STRENGTH: 1% (3.5 ML)
     Route: 058
     Dates: start: 20110926
  16. XYLOCAINE ACCORDION [Concomitant]
     Dosage: 8 ML; STRENGTH: 1% (8 ML)
     Route: 058
     Dates: start: 20110926
  17. XYLOCAINE ACCORDION [Concomitant]
     Dosage: 2 ML; STRENGTH: 1% (2 ML)
     Route: 058
     Dates: start: 20110926
  18. ANAPEINE [Concomitant]
     Active Substance: ROPIVACAINE HYDROCHLORIDE
     Indication: Anaesthesia
     Dosage: 10 ML; STRENGTH: 7.5 MG/ML (10 ML)
     Route: 058
     Dates: start: 20110924
  19. ANAPEINE [Concomitant]
     Active Substance: ROPIVACAINE HYDROCHLORIDE
     Dosage: 25 ML; STRENGTH: 7.5 MG/ML (25 ML)
     Route: 058
     Dates: start: 20110926
  20. LANSOPRAZOLE [Concomitant]
     Active Substance: LANSOPRAZOLE
     Indication: Gastric ulcer
     Dosage: 15 MG X 3 DOSE/DAY (15 MG, 1 IN 8 HR)
     Route: 048
     Dates: end: 20110923
  21. HERBESSER [Concomitant]
     Active Substance: DILTIAZEM HYDROCHLORIDE
     Indication: Hypertension
     Dosage: 100 MG X 3 DOSE/DAY (100 MG, 1 IN 8 HR)
     Route: 048
  22. AMLODIPINE BESYLATE [Concomitant]
     Active Substance: AMLODIPINE BESYLATE
     Indication: Hypertension
     Dosage: (5 MG, 1 D)
     Route: 048
  23. ZOPICLONE [Concomitant]
     Active Substance: ZOPICLONE
     Indication: Insomnia
     Dosage: 7.5 MG X 1 DOSE/DAY (7.5, 1D)
     Route: 048
     Dates: end: 20110923
  24. ASPIRIN [Concomitant]
     Active Substance: ASPIRIN
     Indication: Myocardial ischaemia
     Dosage: 100 MG X 1 DOSE/DAY (100 MG, 1 D)
     Route: 048
     Dates: end: 20110923
  25. CEFAZOLIN SODIUM [Concomitant]
     Active Substance: CEFAZOLIN SODIUM
     Indication: Product used for unknown indication
     Dosage: 1 MILLIGRAM
     Route: 042
     Dates: start: 20110924, end: 20110924
  26. CEFAZOLIN SODIUM [Concomitant]
     Active Substance: CEFAZOLIN SODIUM
     Dosage: 1 MILLIGRAM
     Route: 042
     Dates: start: 20110926, end: 20110926
  27. OXYGEN [Concomitant]
     Active Substance: OXYGEN
     Indication: Product used for unknown indication
     Dosage: 3 L/MIN (3 LIT, 1 MIN)
     Route: 055
     Dates: start: 20110924, end: 20110924
  28. OXYGEN [Concomitant]
     Active Substance: OXYGEN
     Dosage: 2  L/MIN (2 LIT, 1 MIN)
     Route: 055
     Dates: start: 20110924, end: 20110924
  29. OXYGEN [Concomitant]
     Active Substance: OXYGEN
     Dosage: 3 L/MIN (3 LIT, 1 MIN)
     Route: 055
     Dates: start: 20110926, end: 20110926
  30. HEPARIN SODIUM [Concomitant]
     Active Substance: HEPARIN SODIUM
     Indication: Product used for unknown indication
     Dosage: DOSE: 2000 UNIT; STRENGTH: 1000 IU/ML
     Route: 042
     Dates: start: 20110924, end: 20110926
  31. HEPARIN SODIUM [Concomitant]
     Active Substance: HEPARIN SODIUM
     Dosage: DOSE: 2000 UNIT; STRENGTH: 1000 IU/ML
     Route: 042
     Dates: start: 20110926, end: 20110926
  32. MIDAZOLAM [Concomitant]
     Active Substance: MIDAZOLAM
     Indication: Product used for unknown indication
     Dosage: DOSE: 2 MG, NOT REPORTED (2 MG)
     Route: 042
     Dates: start: 20110926
  33. FENTANYL CITRATE [Concomitant]
     Active Substance: FENTANYL CITRATE
     Indication: Product used for unknown indication
     Dosage: 50 MICROGRAM
     Route: 042
     Dates: start: 20110926
  34. FENTANYL CITRATE [Concomitant]
     Active Substance: FENTANYL CITRATE
     Dosage: 25 MICROGRAM
     Route: 042
     Dates: start: 20110926
  35. CLOPIDOGREL BISULFATE [Concomitant]
     Active Substance: CLOPIDOGREL BISULFATE
     Indication: Myocardial ischaemia
     Dosage: (75 MG, 1 D)
     Route: 048
     Dates: end: 20110919

REACTIONS (3)
  - Shunt occlusion [Recovered/Resolved]
  - Venous stenosis [Recovered/Resolved]
  - Hypotension [Recovered/Resolved]

NARRATIVE: CASE EVENT DATE: 20110924
